FAERS Safety Report 8847980 (Version 2)
Quarter: 2015Q3

REPORT INFORMATION
  Report Type: Report from Study
  Country: US (occurrence: US)
  Receive Date: 20121018
  Receipt Date: 20150820
  Transmission Date: 20151125
  Serious: Yes (Other)
  Sender: FDA-Public Use
  Company Number: US-ROCHE-1142213

PATIENT
  Age: 38 Year
  Sex: Female
  Weight: 56.75 kg

DRUGS (30)
  1. NUTROPIN AQ [Suspect]
     Active Substance: SOMATROPIN
     Dosage: 0.13 CC
     Route: 058
  2. NUTROPIN AQ [Suspect]
     Active Substance: SOMATROPIN
     Dosage: 0.08 CC
     Route: 058
  3. NUTROPIN AQ [Suspect]
     Active Substance: SOMATROPIN
     Route: 058
  4. SPIRONOLACTONE. [Concomitant]
     Active Substance: SPIRONOLACTONE
     Route: 048
  5. LEVOTHROID [Concomitant]
     Active Substance: LEVOTHYROXINE SODIUM
     Route: 048
  6. NUTROPIN AQ [Suspect]
     Active Substance: SOMATROPIN
     Route: 058
  7. SYNTHROID [Concomitant]
     Active Substance: LEVOTHYROXINE SODIUM
     Route: 048
  8. MICRO K EXTENCAPS [Concomitant]
  9. NUTROPIN AQ [Suspect]
     Active Substance: SOMATROPIN
     Indication: HYPOTHYROIDISM
     Dosage: 0.12 CC
     Route: 058
  10. NUTROPIN AQ [Suspect]
     Active Substance: SOMATROPIN
     Route: 058
  11. BUMEX [Concomitant]
     Active Substance: BUMETANIDE
     Route: 048
  12. SYNTHROID [Concomitant]
     Active Substance: LEVOTHYROXINE SODIUM
     Route: 048
  13. LEVOXYL [Concomitant]
     Active Substance: LEVOTHYROXINE SODIUM
     Route: 048
  14. NUTROPIN AQ [Suspect]
     Active Substance: SOMATROPIN
     Indication: GROWTH HORMONE DEFICIENCY
     Dosage: 0.006 MG/KG OR 0.07 CC
     Route: 058
     Dates: start: 19990408
  15. NUTROPIN AQ [Suspect]
     Active Substance: SOMATROPIN
     Route: 058
  16. NUTROPIN AQ [Suspect]
     Active Substance: SOMATROPIN
     Route: 058
  17. CLARITIN [Concomitant]
     Active Substance: LORATADINE
  18. SARAFEM [Concomitant]
     Active Substance: FLUOXETINE HYDROCHLORIDE
     Route: 065
  19. ANAPROX [Concomitant]
     Active Substance: NAPROXEN SODIUM
     Route: 065
  20. NUTROPIN AQ [Suspect]
     Active Substance: SOMATROPIN
     Route: 058
  21. NUTROPIN AQ [Suspect]
     Active Substance: SOMATROPIN
     Route: 058
  22. MIRCETTE [Concomitant]
     Active Substance: DESOGESTREL\ETHINYL ESTRADIOL
  23. SARAFEM [Concomitant]
     Active Substance: FLUOXETINE HYDROCHLORIDE
     Route: 048
  24. SARAFEM [Concomitant]
     Active Substance: FLUOXETINE HYDROCHLORIDE
     Route: 048
  25. NUTROPIN AQ [Suspect]
     Active Substance: SOMATROPIN
     Route: 058
  26. SYNTHROID [Concomitant]
     Active Substance: LEVOTHYROXINE SODIUM
     Route: 048
  27. GENOTROPIN [Concomitant]
     Active Substance: SOMATROPIN
  28. CELEBREX [Concomitant]
     Active Substance: CELECOXIB
     Route: 065
  29. NUTROPIN AQ [Suspect]
     Active Substance: SOMATROPIN
     Dosage: 0.15 CC
     Route: 058
  30. NUTROPIN AQ [Suspect]
     Active Substance: SOMATROPIN
     Route: 058

REACTIONS (9)
  - Breast pain [Unknown]
  - Pelvic pain [Unknown]
  - Fluid retention [Unknown]
  - Influenza [Unknown]
  - Fatigue [Unknown]
  - Endometriosis [Unknown]
  - Breast tenderness [Unknown]
  - Pneumonia [Unknown]
  - Menstruation irregular [Recovered/Resolved]

NARRATIVE: CASE EVENT DATE: 19990601
